FAERS Safety Report 24747600 (Version 1)
Quarter: 2024Q4

REPORT INFORMATION
  Report Type: Report from Study
  Country: US (occurrence: US)
  Receive Date: 20241218
  Receipt Date: 20241218
  Transmission Date: 20250114
  Serious: Yes (Hospitalization, Other)
  Sender: NOVARTIS
  Company Number: US-002147023-NVSC2024US238330

PATIENT
  Age: 76 Year
  Sex: Female

DRUGS (15)
  1. TAFINLAR [Suspect]
     Active Substance: DABRAFENIB MESYLATE
     Indication: BRAF V600E mutation positive
     Dosage: 2 DOSAGE FORM, BID
     Route: 048
     Dates: start: 20241022
  2. TAFINLAR [Suspect]
     Active Substance: DABRAFENIB MESYLATE
     Indication: Adenocarcinoma
  3. MEKINIST [Suspect]
     Active Substance: TRAMETINIB DIMETHYL SULFOXIDE
     Indication: BRAF V600E mutation positive
     Dosage: 1.5 MG, QD (TAKE 3 TABLETS DAILY FOR 30 DAYS. TAKE ATLEAST ONE HOUR BEFORE OR TWO HOURS AFTER MEAL)
     Route: 048
     Dates: start: 20241022
  4. MEKINIST [Suspect]
     Active Substance: TRAMETINIB DIMETHYL SULFOXIDE
     Indication: Adenocarcinoma
  5. METOPROLOL SUCCINATE [Concomitant]
     Active Substance: METOPROLOL SUCCINATE
     Indication: Product used for unknown indication
     Dosage: 12.5 MG, QD
     Route: 065
  6. AMOXICILLIN\CLAVULANATE POTASSIUM [Concomitant]
     Active Substance: AMOXICILLIN\CLAVULANATE POTASSIUM
     Indication: Product used for unknown indication
     Dosage: UNK
     Route: 065
  7. TOPROL XL [Concomitant]
     Active Substance: METOPROLOL SUCCINATE
     Indication: Product used for unknown indication
     Dosage: 12.5 MG, QD
     Route: 048
  8. ATACAND [Concomitant]
     Active Substance: CANDESARTAN CILEXETIL
     Indication: Product used for unknown indication
     Dosage: 1 DOSAGE FORM, QD
     Route: 048
     Dates: start: 20240919, end: 20241120
  9. ESTRACE [Concomitant]
     Active Substance: ESTRADIOL
     Indication: Product used for unknown indication
     Dosage: 0.5 G, BIW (USING FINGERTIPS INSERT PEA SIZED AMMOUNT OF 0.5 GRAM INTO VAGINA AT NIGHT) (VAGINAL CRE
     Route: 065
     Dates: start: 20230414
  10. ASPIRIN [Concomitant]
     Active Substance: ASPIRIN
     Indication: Product used for unknown indication
     Dosage: 81 MG EC TABLET
     Route: 048
  11. METAMUCIL [Concomitant]
     Active Substance: PLANTAGO SEED
     Indication: Product used for unknown indication
     Dosage: 0.4 UNK, PRN (CAPSULE)
     Route: 048
     Dates: end: 20241120
  12. VITAMIN D3 [Concomitant]
     Active Substance: CHOLECALCIFEROL
     Indication: Product used for unknown indication
     Dosage: 10 UG 400 UNIT  (TABLET) (TAKE BY MONTH DAILY)
     Route: 048
  13. COLACE [Concomitant]
     Active Substance: DOCUSATE SODIUM
     Indication: Product used for unknown indication
     Dosage: 2 DOSAGE FORM, PRN (CAPSULE)
     Route: 048
  14. Trospium chloride extended release [Concomitant]
     Indication: Product used for unknown indication
     Dosage: 60 MG QD (TAKE 1 CAPSULE (60 MG TOTAL) BY MOUTH DAILY
     Route: 048
     Dates: start: 20240919
  15. TOPROL XL [Concomitant]
     Active Substance: METOPROLOL SUCCINATE
     Indication: Product used for unknown indication
     Dosage: QD (TAKE 0.5 TABLETS (12.5 MG TOTAL)
     Route: 048
     Dates: start: 20241025, end: 20241120

REACTIONS (12)
  - Supraventricular tachycardia [Recovered/Resolved]
  - Neoplasm malignant [Unknown]
  - Arrhythmia [Unknown]
  - Pneumonia [Unknown]
  - Sepsis [Unknown]
  - Retching [Unknown]
  - Nausea [Unknown]
  - Constipation [Unknown]
  - Dyspnoea [Unknown]
  - Sinus tachycardia [Unknown]
  - Kyphosis [Unknown]
  - Pain [Unknown]

NARRATIVE: CASE EVENT DATE: 20241025
